FAERS Safety Report 20066114 (Version 1)
Quarter: 2021Q4

REPORT INFORMATION
  Report Type: Report from Study
  Country: US (occurrence: US)
  Receive Date: 20211114
  Receipt Date: 20211114
  Transmission Date: 20220304
  Serious: Yes (Hospitalization)
  Sender: FDA-Public Use
  Company Number: US-ABBVIE-21K-163-4153882-00

PATIENT
  Sex: Female
  Weight: 136.20 kg

DRUGS (3)
  1. SKYRIZI [Suspect]
     Active Substance: RISANKIZUMAB-RZAA
     Indication: Psoriasis
     Route: 058
  2. MODERNA COVID-19 VACCINE [Concomitant]
     Active Substance: CX-024414
     Indication: COVID-19 immunisation
     Route: 030
     Dates: start: 202103, end: 202103
  3. MODERNA COVID-19 VACCINE [Concomitant]
     Active Substance: CX-024414
     Route: 030
     Dates: start: 202104, end: 202104

REACTIONS (5)
  - Fluid retention [Unknown]
  - Arthralgia [Not Recovered/Not Resolved]
  - Cold urticaria [Not Recovered/Not Resolved]
  - Gait disturbance [Unknown]
  - Weight loss poor [Unknown]

NARRATIVE: CASE EVENT DATE: 20190101
